FAERS Safety Report 7252312-4 (Version None)
Quarter: 2011Q1

REPORT INFORMATION
  Report Type: 
  Country: None (occurrence: None)
  Receive Date: 20110129
  Receipt Date: 20100112
  Transmission Date: 20110831
  Serious: No
  Sender: FDA-Public Use
  Company Number: PR-ABBOTT-10P-131-0618784-00

PATIENT
  Sex: Female
  Weight: 39.952 kg

DRUGS (1)
  1. HUMIRA [Suspect]
     Indication: CROHN'S DISEASE
     Route: 058
     Dates: start: 20090401

REACTIONS (4)
  - INJECTION SITE INFLAMMATION [None]
  - PAIN IN EXTREMITY [None]
  - INJECTION SITE VESICLES [None]
  - GAIT DISTURBANCE [None]
